FAERS Safety Report 8799407 (Version 1)
Quarter: 2012Q4

REPORT INFORMATION
  Report Type: Spontaneous
  Country: US (occurrence: None)
  Receive Date: 20120918
  Receipt Date: 20120918
  Transmission Date: 20130627
  Serious: Yes (Hospitalization)
  Sender: FDA-Public Use
  Company Number: None

PATIENT
  Age: 49 Year
  Sex: Female
  Weight: 63.1 kg

DRUGS (1)
  1. ZOSYN [Suspect]

REACTIONS (1)
  - Tubulointerstitial nephritis [None]
